FAERS Safety Report 8085937-7 (Version None)
Quarter: 2012Q1

REPORT INFORMATION
  Report Type: 
  Country: None (occurrence: None)
  Receive Date: 20120128
  Receipt Date: 20110505
  Transmission Date: 20120608
  Serious: No
  Sender: FDA-Public Use
  Company Number: US-ABBOTT-11P-163-0723636-00

PATIENT
  Sex: Female

DRUGS (1)
  1. HUMIRA [Suspect]
     Indication: RHEUMATOID ARTHRITIS
     Dates: start: 20020201, end: 20110401

REACTIONS (5)
  - ASTHENIA [None]
  - ARTHROPATHY [None]
  - DRUG INEFFECTIVE [None]
  - RASH MACULAR [None]
  - RASH PRURITIC [None]
